FAERS Safety Report 18478775 (Version 1)
Quarter: 2020Q4

REPORT INFORMATION
  Report Type: Spontaneous
  Country: US (occurrence: US)
  Receive Date: 20201109
  Receipt Date: 20201109
  Transmission Date: 20210114
  Serious: Yes (Life-Threatening, Hospitalization)
  Sender: FDA-Public Use
  Company Number: US-AMGEN-USASP2020178252

PATIENT
  Age: 70 Year
  Sex: Female

DRUGS (19)
  1. COREG [Concomitant]
     Active Substance: CARVEDILOL
     Indication: HYPERTENSION
     Dosage: 25 MG X 2 X 1 DAYS
     Dates: start: 20180705
  2. COLCRYS [Concomitant]
     Active Substance: COLCHICINE
     Indication: GOUT
     Dosage: 0.6 MG X 3 X 1 DAYS
     Route: 048
     Dates: start: 20171214
  3. ELAVIL [Concomitant]
     Active Substance: AMITRIPTYLINE HYDROCHLORIDE
     Indication: DEPRESSION
     Dosage: 10 MG X 1 X 1 DAYS
     Route: 048
     Dates: start: 20181123
  4. ISOSORBIDE MONONITRATE. [Concomitant]
     Active Substance: ISOSORBIDE MONONITRATE
     Indication: CORONARY ARTERY DISEASE
     Dosage: 30 MG X 3 X 1 DAYS
     Route: 048
     Dates: start: 20200630
  5. ULTRAM [Concomitant]
     Active Substance: TRAMADOL HYDROCHLORIDE
     Indication: PAIN
     Dosage: 50 MG X 1 X 6 HOURS
     Route: 048
     Dates: start: 20200104
  6. ALBUTEROL [SALBUTAMOL] [Concomitant]
     Active Substance: ALBUTEROL
     Indication: WHEEZING
     Dosage: 2.5 MG X PRN - 90 UG X 1 X 6 HOURS
     Dates: start: 20170515
  7. CARFILZOMIB [Suspect]
     Active Substance: CARFILZOMIB
     Indication: PLASMA CELL MYELOMA
     Dosage: 41 MILLIGRAM
     Route: 042
     Dates: start: 20200831, end: 20200831
  8. ZOVIRAX [Concomitant]
     Active Substance: ACYCLOVIR
     Indication: PROPHYLAXIS
     Dosage: 800 MILLIGRAM, QD (1 X1 DAYS)
     Route: 048
     Dates: start: 20170801
  9. LASIX [Concomitant]
     Active Substance: FUROSEMIDE
     Indication: OEDEMA
     Dosage: 20 MG X 1 X 1 DAYS
     Route: 048
     Dates: start: 20190429
  10. DEXAMETHASONE. [Suspect]
     Active Substance: DEXAMETHASONE
     Indication: PLASMA CELL MYELOMA
     Dosage: 40 MILLIGRAM
     Route: 048
     Dates: start: 20200831, end: 20200831
  11. LANTUS [Concomitant]
     Active Substance: INSULIN GLARGINE
     Indication: DIABETES MELLITUS
     Dosage: 14 PRESSOR UNITS X 1 X 1 DAYS
     Route: 058
     Dates: start: 20190114
  12. ZYLOPRIM [Concomitant]
     Active Substance: ALLOPURINOL
     Indication: GOUT
     Dosage: 100 MG X 1 X 1 DAYS
     Route: 048
     Dates: start: 20170515
  13. VITAMIN B12 [Concomitant]
     Active Substance: CYANOCOBALAMIN
     Indication: VITAMIN B12 DEFICIENCY
     Dosage: 1000 UG X 1 X 1 DAYS
     Route: 048
     Dates: start: 20170616
  14. LYRICA [Concomitant]
     Active Substance: PREGABALIN
     Indication: ANXIETY
     Dosage: 150 MG X 2 X 1 DAYS
     Route: 048
     Dates: start: 20200327
  15. NORVASC [Concomitant]
     Active Substance: AMLODIPINE BESYLATE
     Indication: HYPERTENSION
     Dosage: 10 MG X 1 X 1 DAYS
     Route: 048
     Dates: start: 20170518
  16. ASPIRIN [ACETYLSALICYLIC ACID] [Concomitant]
     Active Substance: ASPIRIN
     Indication: PROPHYLAXIS
     Dosage: 162 MG X 1 X 1 DAYS
     Dates: start: 20180214
  17. TESSALON [Concomitant]
     Active Substance: BENZONATATE
     Indication: COUGH
     Dosage: 100 MG X 2 X 1 DAYS
     Route: 048
     Dates: start: 20190822
  18. CALCIUM VITAMIN D [Concomitant]
     Active Substance: CALCIUM\VITAMIN D
     Indication: VITAMIN SUPPLEMENTATION
     Dosage: 500 MG X 3 X 1 DAYS
     Route: 048
     Dates: start: 20191211
  19. FOLVITE [FOLIC ACID] [Concomitant]
     Indication: VITAMIN B12 DEFICIENCY
     Dosage: 1 MG X 1 X 1 DAYS
     Route: 048
     Dates: start: 20171227

REACTIONS (1)
  - COVID-19 [Not Recovered/Not Resolved]

NARRATIVE: CASE EVENT DATE: 20201012
